FAERS Safety Report 8248654-6 (Version None)
Quarter: 2012Q1

REPORT INFORMATION
  Report Type: 
  Country: None (occurrence: None)
  Receive Date: 20120331
  Receipt Date: 20120322
  Transmission Date: 20120608
  Serious: Yes (Other)
  Sender: FDA-Public Use
  Company Number: US-AMGEN-USASP2012018581

PATIENT
  Age: 64 Year
  Sex: Female

DRUGS (1)
  1. ENBREL [Suspect]
     Indication: RHEUMATOID ARTHRITIS
     Dosage: 50 MG, QWK
     Dates: start: 20021101, end: 20120212

REACTIONS (9)
  - SJOGREN'S SYNDROME [None]
  - COUGH [None]
  - RHEUMATOID ARTHRITIS [None]
  - BRONCHITIS [None]
  - TONSILLITIS [None]
  - UPPER RESPIRATORY TRACT CONGESTION [None]
  - HYPERSENSITIVITY [None]
  - INJECTION SITE PAIN [None]
  - PNEUMONIA [None]
